FAERS Safety Report 5780610-X (Version None)
Quarter: 2008Q2

REPORT INFORMATION
  Report Type: 
  Country: None (occurrence: None)
  Receive Date: 20080620
  Receipt Date: 20080613
  Transmission Date: 20081010
  Serious: Yes (Hospitalization, Other)
  Sender: FDA-Public Use
  Company Number: US-ELI_LILLY_AND_COMPANY-US200805005721

PATIENT
  Sex: Male
  Weight: 95.238 kg

DRUGS (9)
  1. BYETTA [Suspect]
     Indication: TYPE 2 DIABETES MELLITUS
     Dosage: 5 UG, 2/D
     Route: 058
     Dates: start: 20071201, end: 20080101
  2. BYETTA [Suspect]
     Dosage: 10 MG, 2/D
     Route: 058
     Dates: start: 20080101
  3. BYETTA [Suspect]
     Route: 058
     Dates: start: 20080521, end: 20080521
  4. GLIPIZIDE [Concomitant]
     Indication: DIABETES MELLITUS
     Dosage: 20 MG, 2/D
  5. ZOCOR [Concomitant]
     Indication: BLOOD CHOLESTEROL
     Dosage: UNK, EACH EVENING
  6. LYRICA [Concomitant]
     Indication: TRIGEMINAL NEURALGIA
     Dosage: 300 MG, 3/D
  7. BACLOFEN [Concomitant]
     Indication: TRIGEMINAL NEURALGIA
     Dosage: 10 MG, DAILY (1/D)
  8. FLOMAX [Concomitant]
     Dosage: 0.8 MG, DAILY (1/D)
  9. LISINOPRIL [Concomitant]
     Indication: BLOOD PRESSURE INCREASED
     Dosage: 10 MG, DAILY (1/D)

REACTIONS (3)
  - ACCIDENTAL OVERDOSE [None]
  - CONTUSION [None]
  - HYPOGLYCAEMIC UNCONSCIOUSNESS [None]
